FAERS Safety Report 9562129 (Version 1)
Quarter: 2013Q3

REPORT INFORMATION
  Report Type: Spontaneous
  Country: US (occurrence: US)
  Receive Date: 20130927
  Receipt Date: 20130927
  Transmission Date: 20140515
  Serious: No
  Sender: FDA-Public Use
  Company Number: US-009507513-1309USA013177

PATIENT
  Sex: Female
  Weight: 82.86 kg

DRUGS (1)
  1. NEXPLANON [Suspect]
     Dosage: UNK
     Route: 059

REACTIONS (3)
  - Device dislocation [Unknown]
  - Medical device complication [Unknown]
  - No adverse event [Unknown]
